FAERS Safety Report 7142078-0 (Version None)
Quarter: 2010Q4

REPORT INFORMATION
  Report Type: 
  Country: None (occurrence: None)
  Receive Date: 20101207
  Receipt Date: 20101129
  Transmission Date: 20110411
  Serious: Yes (Hospitalization)
  Sender: FDA-Public Use
  Company Number: US-US-EMD SERONO, INC.-7029832

PATIENT
  Sex: Female
  Weight: 68 kg

DRUGS (3)
  1. REBIF [Suspect]
     Indication: MULTIPLE SCLEROSIS
     Route: 058
     Dates: start: 20100830
  2. ORAL BIRTH CONTROL [Suspect]
     Route: 048
     Dates: start: 20020101, end: 20101001
  3. DEPO-PROVERA [Concomitant]
     Dates: start: 20100101

REACTIONS (4)
  - FEMORAL ARTERY EMBOLISM [None]
  - INJECTION SITE PAIN [None]
  - MULTIPLE SCLEROSIS RELAPSE [None]
  - PULMONARY EMBOLISM [None]
